FAERS Safety Report 9641566 (Version 1)
Quarter: 2013Q4

REPORT INFORMATION
  Report Type: Spontaneous
  Country: FR (occurrence: None)
  Receive Date: 20131021
  Receipt Date: 20131021
  Transmission Date: 20140711
  Serious: Yes (Other)
  Sender: FDA-Public Use
  Company Number: FK201304609

PATIENT
  Age: 71 Year
  Sex: Male

DRUGS (5)
  1. CLINDAMYCIN [Suspect]
     Indication: PRODUCT USED FOR UNKNOWN INDICATION
     Route: 042
     Dates: start: 20130813, end: 20130903
  2. RIFADINE [Suspect]
     Indication: PRODUCT USED FOR UNKNOWN INDICATION
     Dates: start: 20130813, end: 20130903
  3. VANCOMYCIN MYLAN [Concomitant]
  4. MERONEM [Concomitant]
  5. TAZOCILLINE [Concomitant]

REACTIONS (4)
  - Renal failure [None]
  - Renal tubular necrosis [None]
  - Toxic skin eruption [None]
  - Pruritus [None]
